FAERS Safety Report 4322946-5 (Version None)
Quarter: 2004Q1

REPORT INFORMATION
  Report Type: 
  Country: None (occurrence: None)
  Receive Date: 20040322
  Receipt Date: 20040309
  Transmission Date: 20041129
  Serious: Yes (Death)
  Sender: FDA-Public Use
  Company Number: USA-2003-0011983

PATIENT
  Age: 53 Year
  Sex: Female
  Weight: 72.1 kg

DRUGS (7)
  1. MORPHINE SULFATE [Suspect]
  2. CARBAMAZEPINE [Suspect]
  3. CHLORDIAZEPOXIDE [Suspect]
  4. CLONAZEPAM [Suspect]
  5. PROPOXYPHENE HCL [Suspect]
  6. DIAZEPAM [Suspect]
  7. CAFFEINE(CAFFEINE) [Suspect]

REACTIONS (5)
  - ACCIDENTAL OVERDOSE [None]
  - ANOXIC ENCEPHALOPATHY [None]
  - BRAIN OEDEMA [None]
  - MULTIPLE DRUG OVERDOSE [None]
  - PULMONARY OEDEMA [None]
